FAERS Safety Report 7022456-0 (Version None)
Quarter: 2010Q3

REPORT INFORMATION
  Report Type: 
  Country: None (occurrence: None)
  Receive Date: 20100930
  Receipt Date: 20100923
  Transmission Date: 20110219
  Serious: Yes (Hospitalization)
  Sender: FDA-Public Use
  Company Number: FR-ROCHE-729205

PATIENT
  Sex: Female

DRUGS (1)
  1. ROACTEMRA [Suspect]
     Indication: PRODUCT USED FOR UNKNOWN INDICATION
     Dosage: INFUSION, FREQUENCY: CYCLE
     Route: 042

REACTIONS (1)
  - PULMONARY EMBOLISM [None]
